FAERS Safety Report 14605298 (Version 1)
Quarter: 2018Q1

REPORT INFORMATION
  Report Type: Spontaneous
  Country: AU (occurrence: AU)
  Receive Date: 20180306
  Receipt Date: 20180306
  Transmission Date: 20180509
  Serious: Yes (Hospitalization)
  Sender: FDA-Public Use
  Company Number: AU-GE HEALTHCARE LIFE SCIENCES-2018CSU000959

PATIENT

DRUGS (1)
  1. OMNIPAQUE [Suspect]
     Active Substance: IOHEXOL
     Indication: CELLULITIS
     Dosage: 50 ML, SINGLE
     Route: 042
     Dates: start: 20180302, end: 20180302

REACTIONS (7)
  - Rash [Recovering/Resolving]
  - Hypotension [Recovering/Resolving]
  - Wheezing [Recovering/Resolving]
  - Oxygen saturation decreased [Recovering/Resolving]
  - Angioedema [Recovering/Resolving]
  - Flushing [Recovering/Resolving]
  - Respiratory distress [Recovering/Resolving]

NARRATIVE: CASE EVENT DATE: 20180302
